FAERS Safety Report 5865681-4 (Version None)
Quarter: 2008Q3

REPORT INFORMATION
  Report Type: 
  Country: None (occurrence: None)
  Receive Date: 20080829
  Receipt Date: 20080725
  Transmission Date: 20090109
  Serious: No
  Sender: FDA-Public Use
  Company Number: US-ABBOTT-08P-163-0465674-00

PATIENT
  Sex: Male
  Weight: 113.5 kg

DRUGS (9)
  1. SIMCOR [Suspect]
     Indication: LOW DENSITY LIPOPROTEIN INCREASED
     Dosage: 500/20 MG DAILY AT BED TIME
     Route: 048
     Dates: start: 20080715, end: 20080719
  2. LANTUS [Concomitant]
     Indication: DIABETES MELLITUS
     Route: 058
  3. METFORMIN HCL [Concomitant]
     Indication: DIABETES MELLITUS
     Route: 048
  4. GLIPIZIDE [Concomitant]
     Indication: DIABETES MELLITUS
     Route: 048
  5. PIOGLITAZONE [Concomitant]
     Indication: DIABETES MELLITUS
     Route: 048
  6. SIMVASTATIN [Concomitant]
     Indication: BLOOD CHOLESTEROL
     Route: 048
  7. FISH OIL [Concomitant]
     Indication: BLOOD CHOLESTEROL
     Route: 048
  8. CANDESARTAN CILEXETIL [Concomitant]
     Indication: BLOOD PRESSURE
     Route: 048
  9. ACETYLSALICYLIC ACID SRT [Concomitant]
     Indication: DRUG USE FOR UNKNOWN INDICATION
     Route: 048

REACTIONS (3)
  - FLUSHING [None]
  - HEADACHE [None]
  - MUSCULAR WEAKNESS [None]
